FAERS Safety Report 8601179-8 (Version None)
Quarter: 2012Q3

REPORT INFORMATION
  Report Type: 
  Country: None (occurrence: None)
  Receive Date: 20120817
  Receipt Date: 20120816
  Transmission Date: 20120928
  Serious: Yes (Death, Hospitalization, Other)
  Sender: FDA-Public Use
  Company Number: PHHY2012DE000998

PATIENT
  Sex: Female
  Weight: 56 kg

DRUGS (15)
  1. NOVALGIN [Concomitant]
     Indication: PAIN
     Dosage: UNK
     Route: 048
     Dates: start: 20120221
  2. ILARIS [Suspect]
     Indication: MUCKLE-WELLS SYNDROME
     Dosage: 150 MG, EVERY 8TH WEEK
     Route: 058
     Dates: start: 20091130, end: 20120523
  3. ASPIRIN [Concomitant]
     Dosage: 100 MG/DAY
     Route: 048
     Dates: start: 20120221
  4. BISOPROLOL FUMARATE [Concomitant]
     Indication: HYPERTENSION
     Dosage: 2.5 MG, UNK
     Route: 048
     Dates: start: 20120221
  5. GRANISETRON HYDROCHLORIDE [Concomitant]
     Indication: NAUSEA
     Dosage: 2 MG/DAY
     Route: 048
     Dates: start: 20120221
  6. BUPRENORPHINE [Concomitant]
     Indication: PAIN
     Dosage: 35 UG/HR, EVERY THIRD DAY
  7. XIPAMIDE [Concomitant]
     Dosage: 5 MG/DAY
     Route: 048
     Dates: start: 20090101
  8. OMEPRAZOLE [Concomitant]
     Dosage: 40 MG/DAY
     Route: 048
     Dates: start: 20120221
  9. SIMVASTATIN [Concomitant]
     Indication: HYPERCHOLESTEROLAEMIA
     Dosage: 20 MG/DAY
  10. TORSEMIDE [Concomitant]
     Indication: CARDIAC FAILURE CONGESTIVE
     Dosage: 10 MG/DAY
     Route: 048
     Dates: start: 20090101
  11. TORSEMIDE [Concomitant]
     Indication: POLYURIA
     Dosage: 10 MG/DAY
     Route: 048
     Dates: start: 20120221
  12. INSIDON [Concomitant]
     Indication: DEPRESSION
     Dosage: 50 MG, UNK
     Route: 048
     Dates: start: 20120221
  13. PANTOPRAZOLE [Concomitant]
     Indication: PROPHYLAXIS
     Dosage: 40 MG/DAY
     Route: 048
     Dates: start: 20090101
  14. MORPHINE [Concomitant]
     Indication: PAIN
     Dates: start: 20120221
  15. DECADRON [Concomitant]
     Indication: PAIN
     Dosage: 4 MG/DAY
     Route: 048
     Dates: start: 20120221

REACTIONS (5)
  - DECREASED APPETITE [None]
  - METASTASES TO LYMPH NODES [None]
  - RECTAL CANCER METASTATIC [None]
  - METASTASES TO CENTRAL NERVOUS SYSTEM [None]
  - METASTASES TO LUNG [None]
